FAERS Safety Report 7772654-3 (Version None)
Quarter: 2011Q3

REPORT INFORMATION
  Report Type: 
  Country: None (occurrence: None)
  Receive Date: 20110922
  Receipt Date: 20110722
  Transmission Date: 20111222
  Serious: No
  Sender: FDA-Public Use
  Company Number: US-ASTRAZENECA-2011SE44162

PATIENT
  Age: 44 Year
  Sex: Male
  Weight: 99.8 kg

DRUGS (4)
  1. ASPIRIN [Concomitant]
  2. SEROQUEL [Suspect]
     Indication: INSOMNIA
     Route: 048
     Dates: start: 20060101
  3. LEXAPRO [Concomitant]
  4. PURPLE PILL FOR STOMACH [Concomitant]

REACTIONS (4)
  - MEMORY IMPAIRMENT [None]
  - VERTIGO [None]
  - ASTHMA [None]
  - OFF LABEL USE [None]
